FAERS Safety Report 9345625 (Version 1)
Quarter: 2013Q2

REPORT INFORMATION
  Report Type: Report from Study
  Country: DE (occurrence: DE)
  Receive Date: 20130613
  Receipt Date: 20130613
  Transmission Date: 20140414
  Serious: Yes (Hospitalization)
  Sender: FDA-Public Use
  Company Number: DE-JNJFOC-20130603094

PATIENT
  Sex: Female
  Weight: 90 kg

DRUGS (2)
  1. REMICADE [Suspect]
     Indication: COLITIS ULCERATIVE
     Route: 042
     Dates: start: 20100310, end: 20120911
  2. PANTOZOL [Concomitant]
     Indication: PROPHYLAXIS
     Route: 048

REACTIONS (2)
  - Colitis ulcerative [Recovering/Resolving]
  - Cytomegalovirus colitis [Recovering/Resolving]
